FAERS Safety Report 4846745-0 (Version None)
Quarter: 2005Q4

REPORT INFORMATION
  Report Type: 
  Country: None (occurrence: None)
  Receive Date: 20051202
  Receipt Date: 20051121
  Transmission Date: 20060501
  Serious: Yes (Hospitalization)
  Sender: FDA-Public Use
  Company Number: 12895

PATIENT
  Age: 71 Year
  Sex: Male
  Weight: 82 kg

DRUGS (17)
  1. CARBOPLATIN [Suspect]
     Dosage: 430 MG DAILY, IV
     Route: 042
     Dates: start: 20040912, end: 20040912
  2. CHLORPROMAZINE HCL [Suspect]
     Dosage: 12 MG PRN
     Dates: start: 20040912, end: 20040912
  3. IFOSFAMIDE [Suspect]
     Dosage: 8 G DAILY, IV
     Route: 042
     Dates: start: 20040912, end: 20040912
  4. MESNA [Suspect]
     Dosage: 8 G DAILY, IV
     Route: 042
     Dates: start: 20040912, end: 20040912
  5. ALLOPURINOL [Concomitant]
  6. PROCHLORPERAZINE MALEATE [Concomitant]
  7. MORPHINE NOS [Concomitant]
  8. LORAZEPAM [Concomitant]
  9. PARACETAMOL [Concomitant]
  10. LACTULOSE [Concomitant]
  11. COLOXYL WITH SENNA [Concomitant]
  12. FAMCICLOVIR [Concomitant]
  13. HEPARIN SODIUM [Concomitant]
  14. MOVICOL [Concomitant]
  15. ROTUXIMAB [Concomitant]
  16. ETOPOSIDE [Concomitant]
  17. OXYCONTIN [Concomitant]

REACTIONS (2)
  - CONFUSIONAL STATE [None]
  - ENCEPHALOPATHY [None]
